FAERS Safety Report 5510192-9 (Version None)
Quarter: 2007Q4

REPORT INFORMATION
  Report Type: 
  Country: None (occurrence: None)
  Receive Date: 20071106
  Receipt Date: 20071031
  Transmission Date: 20080405
  Serious: Yes (Death, Life-Threatening)
  Sender: FDA-Public Use
  Company Number: 2006S1000212

PATIENT
  Age: 2 Day
  Sex: Female
  Weight: 0.87 kg

DRUGS (11)
  1. NITRIC OXIDE [Suspect]
     Indication: LUNG DISORDER
     Dosage: 5 PPM;CONT;INH
     Route: 055
     Dates: start: 20061021, end: 20061026
  2. NITRIC OXIDE [Suspect]
     Indication: PROPHYLAXIS
     Dosage: 5 PPM;CONT;INH
     Route: 055
     Dates: start: 20061021, end: 20061026
  3. DOPAMINE HCL [Concomitant]
  4. DOBUTAMINE HCL [Concomitant]
  5. FENTANYL [Concomitant]
  6. AMPICILLIN [Concomitant]
  7. AMIKACIN [Concomitant]
  8. PLASMA [Concomitant]
  9. BLOOD CELLS, PACKED HUMAN [Concomitant]
  10. FUROSEMIDE [Concomitant]
  11. DOPAMINE HCL [Concomitant]

REACTIONS (5)
  - CARDIAC ARREST [None]
  - INTRAVENTRICULAR HAEMORRHAGE [None]
  - PATENT DUCTUS ARTERIOSUS [None]
  - PULMONARY HAEMORRHAGE [None]
  - RESPIRATORY DISTRESS [None]
